FAERS Safety Report 18256403 (Version 1)
Quarter: 2020Q3

REPORT INFORMATION
  Report Type: Spontaneous
  Country: US (occurrence: US)
  Receive Date: 20200910
  Receipt Date: 20200910
  Transmission Date: 20201103
  Serious: Yes (Death)
  Sender: FDA-Public Use
  Company Number: None

PATIENT
  Age: 73 Year
  Sex: Male
  Weight: 82.6 kg

DRUGS (2)
  1. NIVOLUMAB [Suspect]
     Active Substance: NIVOLUMAB
     Indication: RENAL CELL CARCINOMA
  2. IPILIMUMAB [Concomitant]
     Active Substance: IPILIMUMAB

REACTIONS (17)
  - Multiple organ dysfunction syndrome [None]
  - Unresponsive to stimuli [None]
  - Tachycardia [None]
  - Hypotension [None]
  - Myocarditis [None]
  - Troponin increased [None]
  - Dyspnoea [None]
  - Cardiogenic shock [None]
  - General physical health deterioration [None]
  - Blood lactic acid increased [None]
  - Liver function test increased [None]
  - Hyperkalaemia [None]
  - Septic shock [None]
  - Asthenia [None]
  - Pupil fixed [None]
  - Acute kidney injury [None]
  - Pulseless electrical activity [None]

NARRATIVE: CASE EVENT DATE: 20200721
